FAERS Safety Report 15020349 (Version 4)
Quarter: 2018Q3

REPORT INFORMATION
  Report Type: Spontaneous
  Country: US (occurrence: US)
  Receive Date: 20180618
  Receipt Date: 20180831
  Transmission Date: 20181010
  Serious: Yes (Hospitalization, Other)
  Sender: FDA-Public Use
  Company Number: US-AMGEN-USASP2018080188

PATIENT
  Age: 56 Year
  Sex: Female

DRUGS (90)
  1. BIOTENE NOS [Concomitant]
     Active Substance: CETYLPYRIDINIUM CHLORIDE OR SODIUM FLUORIDE OR SODIUM MONOFLUOROPHOSPHATE OR GLUCOSE OXIDASE\LACTOFERRIN\LACTOPEROXIDASE BOVINE\LYSOZYME
     Indication: DRY MOUTH
     Dosage: 2 SPRAY, AS NECESSARY (PRN)
     Route: 048
  2. LOSARTAN. [Concomitant]
     Active Substance: LOSARTAN
     Indication: HYPERTENSION
     Dosage: 50 MG, QD
     Route: 048
  3. OXYCODONE [Concomitant]
     Active Substance: OXYCODONE
     Indication: PAIN
     Dosage: 10 MG, Q4H
     Route: 048
  4. MORPHINE [Concomitant]
     Active Substance: MORPHINE
     Indication: CHEST PAIN
     Dosage: 4 MG, UNK
     Route: 042
     Dates: start: 20180219
  5. MAGNESIUM [Concomitant]
     Active Substance: MAGNESIUM
     Dosage: 200 MG, QD
     Route: 048
  6. LACTATED RINGERS SOLUTION [Concomitant]
     Active Substance: CALCIUM CHLORIDE\POTASSIUM CHLORIDE\SODIUM CHLORIDE\SODIUM LACTATE
     Dosage: 900 ML, UNK
     Route: 042
  7. SULFASALAZINE. [Concomitant]
     Active Substance: SULFASALAZINE
     Indication: RHEUMATOID ARTHRITIS
     Dosage: UNK
     Dates: start: 201803
  8. ADDERALL [Concomitant]
     Active Substance: AMPHETAMINE ASPARTATE\AMPHETAMINE SULFATE\DEXTROAMPHETAMINE SACCHARATE\DEXTROAMPHETAMINE SULFATE
     Dosage: 20 MG, QD QAM
     Route: 048
  9. TRIAMTERENE AND HYDROCHLOROTHIAZIDE [Concomitant]
     Active Substance: HYDROCHLOROTHIAZIDE\TRIAMTERENE
     Dosage: 37.5MG/25MG CAPSULES TAKE 1 CAPSULE, QD
     Route: 048
  10. HUMALOG [Concomitant]
     Active Substance: INSULIN LISPRO
     Dosage: 100UNITS/1ML PEN SYSTEM, DISPOSABLE SLIDING SCALE AS DIRECTED
  11. GLUCOPHAGE [Concomitant]
     Active Substance: METFORMIN HYDROCHLORIDE
     Dosage: 500 MG 1 TABLET, BID
     Route: 048
  12. BUPROPION HCL [Concomitant]
     Active Substance: BUPROPION HYDROCHLORIDE
     Dosage: 150 MG, QD
     Route: 048
  13. COLACE [Concomitant]
     Active Substance: DOCUSATE SODIUM
     Indication: CONSTIPATION
     Dosage: 100 MG, PRN, BID
     Route: 048
  14. PHENERGAN [Concomitant]
     Active Substance: PROMETHAZINE HYDROCHLORIDE
     Indication: PAIN
     Dosage: 25 MG, UNK
     Route: 048
  15. TRAMADOL. [Concomitant]
     Active Substance: TRAMADOL
     Indication: PAIN
     Dosage: 50 MG, 1 TAB, PRN, Q4HR
     Route: 048
  16. WELLBUTRIN [Concomitant]
     Active Substance: BUPROPION HYDROCHLORIDE
     Indication: MOOD SWINGS
     Dosage: 300 MG, QD
     Route: 048
  17. ZOFRAN [Concomitant]
     Active Substance: ONDANSETRON HYDROCHLORIDE
     Indication: VOMITING
  18. VIVELLE [Concomitant]
     Active Substance: ESTRADIOL
     Indication: HORMONE LEVEL ABNORMAL
     Dosage: 0.1 MG, 2 TIMES/WK, TRANSDERMAL FILM, EXTENDED RELEASE ONE PATCH QSATTUE
     Route: 062
  19. LEXISCAN [Concomitant]
     Active Substance: REGADENOSON
     Indication: STRESS
     Dosage: 0.4 MG/5ML
     Route: 042
  20. LIDOCAINE. [Concomitant]
     Active Substance: LIDOCAINE
     Dosage: 100 MG/5ML, UNK
     Route: 042
  21. VERAPAMIL HCL [Concomitant]
     Active Substance: VERAPAMIL HYDROCHLORIDE
     Indication: HYPERTENSION
     Dosage: 120 MG, QD
     Route: 048
  22. REMERON [Concomitant]
     Active Substance: MIRTAZAPINE
     Dosage: 15 MG, QD (AT BEDTIME)
     Route: 048
  23. PROBIOTIC [Concomitant]
     Active Substance: PROBIOTICS NOS
     Dosage: 1 TAB, QD
     Route: 048
  24. DULOXETINE HCL [Concomitant]
     Active Substance: DULOXETINE HYDROCHLORIDE
     Indication: MOOD SWINGS
     Dosage: 60 MG, QD
     Route: 048
  25. PREDNISONE. [Concomitant]
     Active Substance: PREDNISONE
     Dosage: 20 MG, QD
     Route: 048
  26. RANITIDINE. [Concomitant]
     Active Substance: RANITIDINE
     Dosage: 150 MG, UNK
     Route: 048
  27. ZOFRAN [Concomitant]
     Active Substance: ONDANSETRON HYDROCHLORIDE
     Indication: NAUSEA
     Dosage: 8 MG, ORAL TABLET, DISINTEGRATING 1 TAB, PRN, PO/SL (ORALLY OR UNDER TONGUE), TID
  28. ZOFRAN [Concomitant]
     Active Substance: ONDANSETRON HYDROCHLORIDE
     Indication: DIARRHOEA
  29. HYDROXYCHLOROQUINE [Concomitant]
     Active Substance: HYDROXYCHLOROQUINE
     Dosage: 400 MG, QD
     Route: 048
  30. METOPROLOL TARTRATE. [Concomitant]
     Active Substance: METOPROLOL TARTRATE
     Dosage: 50 MG, 0.5 TAB, AS DIRECTED
     Route: 048
  31. SULFADIAZINE. [Concomitant]
     Active Substance: SULFADIAZINE
     Dosage: 500 MG, BID
     Route: 048
  32. ALBUTEROL. [Concomitant]
     Active Substance: ALBUTEROL
     Indication: ASTHMA
     Dosage: 90 MUG, Q4H
  33. FOLIC ACID. [Concomitant]
     Active Substance: FOLIC ACID
     Dosage: 1 MG, BID
     Route: 048
  34. TRESIBA [Concomitant]
     Active Substance: INSULIN DEGLUDEC
     Dosage: 100UNITS/1ML LNJECTION 10 UNITS/DAY
  35. DOXYCYCLINE HYCLATE. [Concomitant]
     Active Substance: DOXYCYCLINE HYCLATE
     Dosage: 100 MG 1 TABLET, BID
     Route: 048
  36. LORAZEPAM. [Concomitant]
     Active Substance: LORAZEPAM
     Dosage: 1 MG, 1 TABLET TID PRN
  37. LEVOFLOXACIN. [Concomitant]
     Active Substance: LEVOFLOXACIN
     Dosage: 750 MG, QD FOR 7 DAYS
  38. METFORMIN HCL [Concomitant]
     Active Substance: METFORMIN HYDROCHLORIDE
     Indication: TYPE 2 DIABETES MELLITUS
     Dosage: 500 MG, BID
     Route: 048
  39. DEXAMETHASONE. [Concomitant]
     Active Substance: DEXAMETHASONE
     Indication: PROPHYLAXIS
     Dosage: 4 MG, UNK
     Route: 048
  40. PANTOPRAZOLE [Concomitant]
     Active Substance: PANTOPRAZOLE
     Indication: GASTROOESOPHAGEAL REFLUX DISEASE
     Dosage: 40 MG, QD
     Route: 048
  41. IOHEXOL [Concomitant]
     Active Substance: IOHEXOL
     Dosage: 100 ML, UNK
     Dates: start: 20180219
  42. GADAVIST [Concomitant]
     Active Substance: GADOBUTROL
     Dosage: 14 ML, UNK
     Route: 042
  43. INSULIN [Concomitant]
     Active Substance: INSULIN NOS
     Indication: TYPE 2 DIABETES MELLITUS
  44. VITAMIN D [Concomitant]
     Active Substance: CHOLECALCIFEROL
     Dosage: UNK
  45. ESOMEPRAZOLE [Concomitant]
     Active Substance: ESOMEPRAZOLE
     Dosage: 40 MG, QD
  46. BUDESONIDE W/FORMOTEROL FUMARATE [Concomitant]
     Active Substance: BUDESONIDE\FORMOTEROL FUMARATE
     Dosage: 160MCG/4.5MCG ORAL INHALER INHALE 1 PUFF, BID
     Route: 048
  47. CRESTOR [Concomitant]
     Active Substance: ROSUVASTATIN CALCIUM
     Indication: BLOOD CHOLESTEROL ABNORMAL
     Dosage: 10 MG, QHS
     Route: 048
  48. IBUPROFEN. [Concomitant]
     Active Substance: IBUPROFEN
     Indication: PAIN
     Dosage: 600 MG, 1 TAB, PRN, QID
     Route: 048
  49. LOMOTIL [Concomitant]
     Active Substance: ATROPINE SULFATE\DIPHENOXYLATE HYDROCHLORIDE
     Dosage: 2.5 MG?0.025 MG,1 TAB, PRN, QID
     Route: 048
  50. SYMBICORT [Concomitant]
     Active Substance: BUDESONIDE\FORMOTEROL FUMARATE DIHYDRATE
     Indication: ASTHMA
     Dosage: 160 MCG?4.5 MCG/INH 2 PUFF, INHALATION, BID
  51. HEPARIN FLUSH [Concomitant]
     Active Substance: HEPARIN SODIUM
     Dosage: 100 UNITS/ML; 500 UNITS,QH WEEK1,7,13,19,25,PRN:OTHER
  52. AMINOPHYLLINE. [Concomitant]
     Active Substance: AMINOPHYLLINE
     Dosage: 75 MG, UNK
     Route: 042
  53. PHENYLEPHRINE [Concomitant]
     Active Substance: PHENYLEPHRINE\PHENYLEPHRINE HYDROCHLORIDE
     Dosage: 0.1 MG/ML, UNK
     Route: 042
  54. LOVENOX [Concomitant]
     Active Substance: ENOXAPARIN SODIUM
     Dosage: 40 MG, UNK FOR 11 DAYS
  55. PLAQUENIL [Concomitant]
     Active Substance: HYDROXYCHLOROQUINE SULFATE
     Indication: RHEUMATOID ARTHRITIS
     Dosage: UNK
     Dates: start: 201803
  56. REMICADE [Concomitant]
     Active Substance: INFLIXIMAB
     Dosage: UNK
  57. MIRTAZAPINE. [Concomitant]
     Active Substance: MIRTAZAPINE
     Indication: MOOD SWINGS
     Dosage: 15 MG, QHS
     Route: 048
  58. ASPIRIN. [Concomitant]
     Active Substance: ASPIRIN
     Dosage: 324 MG, 4 TABLETS UNK
     Route: 048
     Dates: start: 20180219
  59. VITAMIN B12 [Concomitant]
     Active Substance: CYANOCOBALAMIN
     Dosage: 1000 MUG, QD
     Route: 048
  60. NEXIUM [Concomitant]
     Active Substance: ESOMEPRAZOLE MAGNESIUM
     Dosage: UNK UNK, QD
     Route: 048
  61. ZANTAC [Concomitant]
     Active Substance: RANITIDINE HYDROCHLORIDE
     Dosage: 150 MG, BID
     Route: 048
  62. FENTANYL. [Concomitant]
     Active Substance: FENTANYL
     Dosage: 25 MCG/0.5 ML, UNK
     Route: 042
  63. CYMBALTA [Concomitant]
     Active Substance: DULOXETINE HYDROCHLORIDE
     Indication: DEPRESSION
     Dosage: 60 MG, QD
     Route: 048
  64. MELOXICAM. [Concomitant]
     Active Substance: MELOXICAM
     Dosage: 15 MG, QD
     Route: 048
  65. SODIUM CHLORIDE. [Concomitant]
     Active Substance: SODIUM CHLORIDE
     Dosage: 1000 ML, UNK
     Dates: start: 20180219
  66. FUROSEMIDE. [Concomitant]
     Active Substance: FUROSEMIDE
     Dosage: 40 MG, QD
     Route: 048
  67. VITAMIN B6 [Concomitant]
     Active Substance: PYRIDOXINE HYDROCHLORIDE
     Dosage: 100 MG, QD
     Route: 048
  68. ATIVAN [Concomitant]
     Active Substance: LORAZEPAM
     Indication: ANXIETY
     Dosage: 1 MG, PRN, TID
     Route: 048
  69. VALTREX [Concomitant]
     Active Substance: VALACYCLOVIR HYDROCHLORIDE
     Dosage: 500 MG, BID
     Route: 048
  70. PROPOFOL. [Concomitant]
     Active Substance: PROPOFOL
     Dosage: 50MG/5ML
     Route: 042
  71. VITAMIN C [Concomitant]
     Active Substance: ASCORBIC ACID
     Dosage: 1000 MG, QD
     Route: 048
  72. SULINDAC. [Concomitant]
     Active Substance: SULINDAC
     Dosage: 200 MG, BID
     Route: 048
  73. ROSUVASTATIN. [Concomitant]
     Active Substance: ROSUVASTATIN
     Dosage: 10 MG, QD
     Route: 048
  74. CLINDAMYCIN HCL [Concomitant]
     Active Substance: CLINDAMYCIN HYDROCHLORIDE
     Dosage: 150 MG, TID FOR 10 DAYS
  75. HYPROMELLOSE [Concomitant]
     Active Substance: HYPROMELLOSES
     Dosage: 0.3 % ONE TO TWO DROPS TO AFFECTED EYE PRN
     Route: 047
  76. ENBREL [Suspect]
     Active Substance: ETANERCEPT
     Indication: PRODUCT USED FOR UNKNOWN INDICATION
     Dosage: 50 MG, QWK (EVERY MONDAY)
     Route: 058
     Dates: start: 201612
  77. HCTZ [Suspect]
     Active Substance: HYDROCHLOROTHIAZIDE
     Indication: PRODUCT USED FOR UNKNOWN INDICATION
     Dosage: UNK
     Route: 065
  78. JARDIANCE [Concomitant]
     Active Substance: EMPAGLIFLOZIN
     Indication: TYPE 2 DIABETES MELLITUS
     Dosage: 10 MG, QD (QAM), 1 TAB
     Route: 048
  79. PROAIR HFA [Concomitant]
     Active Substance: ALBUTEROL SULFATE
     Indication: ASTHMA
     Dosage: 90 MCG/INH INHALATION AEROSOL 2 PUFF, PRN, QID
  80. SYSTANE (HYPROMELLOSE 2910 (4000 MPA.S)) [Concomitant]
     Active Substance: HYPROMELLOSE 2910 (4000 MPA.S)
     Indication: DRY EYE
     Dosage: 2 GTT, AS NECESSARY, FOR BOTH EYES
  81. TYLENOL ARTHRITIS PAIN [Concomitant]
     Active Substance: ACETAMINOPHEN
     Dosage: 650 MG, Q8H,
     Route: 048
  82. BENADRYL [Concomitant]
     Active Substance: DIPHENHYDRAMINE HYDROCHLORIDE
     Dosage: UNK
  83. DECADRON [Concomitant]
     Active Substance: DEXAMETHASONE
     Dosage: 4 MG, UNK
  84. MIDAZOLAM [Concomitant]
     Active Substance: MIDAZOLAM HYDROCHLORIDE
     Dosage: 1 MG, UNK
     Route: 042
  85. PERCOCET [Concomitant]
     Active Substance: ACETAMINOPHEN\OXYCODONE HYDROCHLORIDE
     Indication: PAIN
     Dosage: 1 TAB , Q6H, PRN
     Route: 048
  86. DYAZIDE [Concomitant]
     Active Substance: HYDROCHLOROTHIAZIDE\TRIAMTERENE
     Dosage: 37.5MG/25MG CAPSULES TAKES ONE CAPSULE, QD
     Route: 048
  87. LISINOPRIL. [Concomitant]
     Active Substance: LISINOPRIL
     Dosage: 20 MG, QD
     Route: 048
  88. RAYOS [Concomitant]
     Active Substance: PREDNISONE
     Dosage: 5 MG, QD WITH FOOD
     Route: 048
  89. ACETAMINOPHEN. [Concomitant]
     Active Substance: ACETAMINOPHEN
     Dosage: 80 MG, 1 TABLET Q4 TO Q6 PRN
     Route: 048
  90. DOCUSATE SODIUM. [Concomitant]
     Active Substance: DOCUSATE SODIUM
     Dosage: 100 MG, 1 CAPSULE BID PRN
     Route: 048

REACTIONS (6)
  - Sarcoidosis [Unknown]
  - Drug effect incomplete [Unknown]
  - Ovarian cancer stage III [Recovering/Resolving]
  - Obstructive airways disorder [Unknown]
  - Upper respiratory tract infection [Unknown]
  - Hypercalcaemia [Unknown]

NARRATIVE: CASE EVENT DATE: 201612
